FAERS Safety Report 5706212-9 (Version None)
Quarter: 2008Q2

REPORT INFORMATION
  Report Type: 
  Country: None (occurrence: None)
  Receive Date: 20080415
  Receipt Date: 20080408
  Transmission Date: 20081010
  Serious: Yes (Hospitalization)
  Sender: FDA-Public Use
  Company Number: GB-BOEHRINGER INGELHEIM GMBH, GERMANY-2008-BP-05487RO

PATIENT
  Age: 18 Year
  Sex: Female

DRUGS (8)
  1. METHADONE HCL [Suspect]
     Indication: DRUG DEPENDENCE
  2. HEROIN [Suspect]
     Route: 055
  3. SYSTEMIC ANTIVIRALS [Concomitant]
     Indication: NECROLYTIC MIGRATORY ERYTHEMA
  4. SYSTEMIC ANTIBIOTICS [Concomitant]
     Indication: NECROLYTIC MIGRATORY ERYTHEMA
  5. SYSTEMIC STEROIDS [Concomitant]
     Indication: NECROLYTIC MIGRATORY ERYTHEMA
  6. TOPICAL STEROIDS [Concomitant]
     Indication: NECROLYTIC MIGRATORY ERYTHEMA
     Route: 061
  7. TOPICAL ANTIFUNGALS [Concomitant]
     Indication: NECROLYTIC MIGRATORY ERYTHEMA
     Route: 061
  8. TOPICAL ANTIBIOTICS [Concomitant]
     Indication: NECROLYTIC MIGRATORY ERYTHEMA
     Route: 061

REACTIONS (4)
  - HERPES SEPSIS [None]
  - HERPES SIMPLEX [None]
  - NECROLYTIC MIGRATORY ERYTHEMA [None]
  - STAPHYLOCOCCAL INFECTION [None]
